FAERS Safety Report 21835148 (Version 1)
Quarter: 2023Q1

REPORT INFORMATION
  Report Type: Spontaneous
  Country: US (occurrence: US)
  Receive Date: 20230109
  Receipt Date: 20230109
  Transmission Date: 20230417
  Serious: Yes (Hospitalization, Other)
  Sender: FDA-Public Use
  Company Number: US-AMGEN-USASP2022227273

PATIENT
  Sex: Female

DRUGS (3)
  1. BEVACIZUMAB [Suspect]
     Active Substance: BEVACIZUMAB
     Indication: Hepatocellular carcinoma
     Route: 065
  2. BEVACIZUMAB [Suspect]
     Active Substance: BEVACIZUMAB
     Indication: Off label use
  3. ATEZOLIZUMAB [Suspect]
     Active Substance: ATEZOLIZUMAB
     Indication: Hepatocellular carcinoma
     Dosage: UNK
     Route: 065

REACTIONS (7)
  - Diabetic ketoacidosis [Recovered/Resolved]
  - Stress cardiomyopathy [Recovered/Resolved]
  - Atelectasis [Recovered/Resolved]
  - Dry age-related macular degeneration [Recovered/Resolved]
  - Acute myocardial infarction [Unknown]
  - Hypervolaemia [Recovered/Resolved]
  - Off label use [Unknown]
